FAERS Safety Report 6277971-4 (Version None)
Quarter: 2009Q3

REPORT INFORMATION
  Report Type: 
  Country: None (occurrence: None)
  Receive Date: 20090722
  Receipt Date: 20090713
  Transmission Date: 20100115
  Serious: Yes (Hospitalization)
  Sender: FDA-Public Use
  Company Number: US-PFIZER INC-2009241077

PATIENT

DRUGS (2)
  1. REVATIO [Suspect]
  2. NORVIR [Suspect]

REACTIONS (2)
  - DYSPEPSIA [None]
  - REFLUX OESOPHAGITIS [None]
